FAERS Safety Report 4566514-9 (Version None)
Quarter: 2005Q1

REPORT INFORMATION
  Report Type: 
  Country: None (occurrence: None)
  Receive Date: 20050126
  Receipt Date: 20050126
  Transmission Date: 20050727
  Serious: Yes (Other)
  Sender: FDA-Public Use
  Company Number: None

PATIENT
  Age: 40 Year

DRUGS (7)
  1. GLUCOPHAGE XR [Suspect]
     Indication: DIABETES MELLITUS NON-INSULIN-DEPENDENT
     Dosage: ONE BID
     Dates: start: 20041111
  2. GLUCOPHAGE XR [Suspect]
     Indication: HYPERSENSITIVITY
     Dosage: ONE BID
     Dates: start: 20041111
  3. GLUCOPHAGE XR [Suspect]
     Indication: DIABETES MELLITUS NON-INSULIN-DEPENDENT
     Dosage: ONE BID
     Dates: start: 20041210
  4. GLUCOPHAGE XR [Suspect]
     Indication: HYPERSENSITIVITY
     Dosage: ONE BID
     Dates: start: 20041210
  5. EFFEXOR XR [Concomitant]
  6. LOTENSIN [Concomitant]
  7. CRESTOR [Concomitant]

REACTIONS (3)
  - PRURITUS GENERALISED [None]
  - RASH [None]
  - URTICARIA GENERALISED [None]
